FAERS Safety Report 18882466 (Version 1)
Quarter: 2021Q1

REPORT INFORMATION
  Report Type: Spontaneous
  Country: US (occurrence: US)
  Receive Date: 20210211
  Receipt Date: 20210211
  Transmission Date: 20210420
  Serious: No
  Sender: FDA-Public Use
  Company Number: US-PERRIGO-20US006370

PATIENT
  Sex: Female

DRUGS (1)
  1. CETIRIZINE HYDROCHLORIDE. [Suspect]
     Active Substance: CETIRIZINE HYDROCHLORIDE
     Indication: WRONG PRODUCT ADMINISTERED
     Dosage: 30 MG, SINGLE
     Route: 048
     Dates: start: 20200429, end: 20200429

REACTIONS (2)
  - Accidental overdose [Recovered/Resolved]
  - Dizziness [Recovered/Resolved]

NARRATIVE: CASE EVENT DATE: 20200429
